FAERS Safety Report 6940165-0 (Version None)
Quarter: 2010Q3

REPORT INFORMATION
  Report Type: 
  Country: None (occurrence: None)
  Receive Date: 20100825
  Receipt Date: 20100817
  Transmission Date: 20110219
  Serious: Yes (Other)
  Sender: FDA-Public Use
  Company Number: CH-ASTRAZENECA-2010SE38742

PATIENT
  Age: 34 Year
  Sex: Female

DRUGS (3)
  1. METOPROLOL SUCCINATE [Suspect]
     Indication: RENAL HYPERTENSION
     Route: 048
     Dates: start: 20100101
  2. ZANIDIP [Suspect]
     Indication: RENAL HYPERTENSION
     Dates: start: 20100401
  3. ALDACTONE [Suspect]
     Indication: RENAL HYPERTENSION
     Dates: start: 20100701

REACTIONS (2)
  - DRUG EXPOSURE DURING PREGNANCY [None]
  - PREGNANCY [None]
